FAERS Safety Report 8177312-1 (Version None)
Quarter: 2012Q1

REPORT INFORMATION
  Report Type: 
  Country: None (occurrence: None)
  Receive Date: 20120301
  Receipt Date: 20120226
  Transmission Date: 20120608
  Serious: Yes (Other)
  Sender: FDA-Public Use
  Company Number: IT-PFIZER INC-2012050716

PATIENT
  Age: 73 Year
  Sex: Female

DRUGS (2)
  1. PHENYTOIN SODIUM [Suspect]
     Indication: CONVULSION
     Dosage: 250 MG, TOTAL DOSE
     Route: 042
     Dates: start: 20120202, end: 20120202
  2. VALIUM [Concomitant]

REACTIONS (2)
  - HYPOTENSION [None]
  - HEART RATE DECREASED [None]
